FAERS Safety Report 9689329 (Version 3)
Quarter: 2014Q2

REPORT INFORMATION
  Report Type: Spontaneous
  Country: US (occurrence: US)
  Receive Date: 20131114
  Receipt Date: 20140409
  Transmission Date: 20141212
  Serious: Yes (Other)
  Sender: FDA-Public Use
  Company Number: US-B.I. PHARMACEUTICALS,INC./RIDGEFIELD-2013-BI-36388BP

PATIENT
  Sex: Female
  Weight: 103.87 kg

DRUGS (7)
  1. PRADAXA [Suspect]
     Indication: ATRIAL FIBRILLATION
     Dosage: 300 MG
     Route: 048
     Dates: start: 20110622, end: 20111118
  2. FOSAMAX [Concomitant]
     Route: 065
  3. METOPROLOL [Concomitant]
     Dosage: 200 MG
     Route: 048
  4. NORCO [Concomitant]
     Route: 048
  5. FOLIC ACID [Concomitant]
     Dosage: 1 MG
     Route: 048
  6. LISINOPRIL [Concomitant]
     Dosage: 20 MG
     Route: 048
  7. METHOTREXATE [Concomitant]
     Indication: PSORIATIC ARTHROPATHY
     Route: 048

REACTIONS (1)
  - Ischaemic stroke [Unknown]
